FAERS Safety Report 21117795 (Version 1)
Quarter: 2022Q3

REPORT INFORMATION
  Report Type: Report from Study
  Country: US (occurrence: US)
  Receive Date: 20220722
  Receipt Date: 20220722
  Transmission Date: 20221027
  Serious: Yes (Death, Hospitalization, Other)
  Sender: FDA-Public Use
  Company Number: US-VALIDUS PHARMACEUTICALS LLC-US-VDP-2022-015632

PATIENT

DRUGS (18)
  1. LASIX [Suspect]
     Active Substance: FUROSEMIDE
     Indication: Product used for unknown indication
     Dosage: 20 MG, QD, AS NEEDED,
     Route: 048
  2. KORLYM [Suspect]
     Active Substance: MIFEPRISTONE
     Indication: Cushing^s syndrome
     Dosage: 300 MILLIGRAM, QD
     Route: 065
     Dates: start: 20220609, end: 202206
  3. OMEPRAZOLE [Suspect]
     Active Substance: OMEPRAZOLE
     Indication: Gastrooesophageal reflux disease
     Dosage: 40 MILLIGRAM, QD
     Route: 048
  4. HYDROCHLOROTHIAZIDE [Suspect]
     Active Substance: HYDROCHLOROTHIAZIDE
     Indication: Product used for unknown indication
     Route: 065
  5. LACTULOSE [Suspect]
     Active Substance: LACTULOSE
     Indication: Product used for unknown indication
     Dosage: 30 MILLILITER, TID
     Route: 048
  6. ASPIRIN [Concomitant]
     Active Substance: ASPIRIN
     Indication: Product used for unknown indication
     Route: 065
  7. ALBUTEROL [Concomitant]
     Active Substance: ALBUTEROL
     Indication: Product used for unknown indication
     Route: 065
  8. AMLODIPINE [Concomitant]
     Active Substance: AMLODIPINE BESYLATE
     Indication: Product used for unknown indication
     Route: 065
  9. ESTRADIOL [Concomitant]
     Active Substance: ESTRADIOL
     Indication: Product used for unknown indication
     Route: 065
  10. HYDROMORPHONE [Concomitant]
     Active Substance: HYDROMORPHONE
     Indication: Product used for unknown indication
     Route: 065
  11. LYRICA [Concomitant]
     Active Substance: PREGABALIN
     Indication: Product used for unknown indication
     Route: 065
  12. SINGULAIR [Concomitant]
     Active Substance: MONTELUKAST SODIUM
     Indication: Product used for unknown indication
     Route: 065
  13. SYNTHROID [Concomitant]
     Active Substance: LEVOTHYROXINE SODIUM
     Indication: Product used for unknown indication
     Route: 065
  14. TIZANIDINE [Concomitant]
     Active Substance: TIZANIDINE
     Indication: Product used for unknown indication
     Route: 065
  15. WELLBUTRIN [Concomitant]
     Active Substance: BUPROPION HYDROCHLORIDE
     Indication: Product used for unknown indication
     Route: 065
  16. ZOFRAN [Concomitant]
     Active Substance: ONDANSETRON HYDROCHLORIDE
     Indication: Product used for unknown indication
     Route: 065
  17. BACLOFEN [Concomitant]
     Active Substance: BACLOFEN
     Indication: Product used for unknown indication
     Route: 065
  18. RIFAXIMIN [Concomitant]
     Active Substance: RIFAXIMIN
     Indication: Product used for unknown indication
     Route: 065

REACTIONS (19)
  - Acute respiratory failure [Fatal]
  - Hepatic failure [Fatal]
  - Hepatic encephalopathy [Fatal]
  - Abdominal pain [Fatal]
  - Mental status changes [Fatal]
  - Hepatic cirrhosis [Fatal]
  - Ammonia increased [Unknown]
  - Pneumonia [Unknown]
  - Malaise [Unknown]
  - Abdominal distension [Unknown]
  - Ovarian cyst [Unknown]
  - Retching [Unknown]
  - Urinary retention [Unknown]
  - Nephrolithiasis [Unknown]
  - Blood potassium decreased [Unknown]
  - Fatigue [Unknown]
  - Nausea [Unknown]
  - Vomiting [Unknown]
  - Hypokalaemia [Unknown]

NARRATIVE: CASE EVENT DATE: 20220610
